FAERS Safety Report 5299532-6 (Version None)
Quarter: 2007Q2

REPORT INFORMATION
  Report Type: 
  Country: None (occurrence: None)
  Receive Date: 20070410
  Receipt Date: 20070330
  Transmission Date: 20071010
  Serious: No
  Sender: FDA-Public Use
  Company Number: A0640062A

PATIENT
  Age: 49 Year
  Sex: Female
  Weight: 63.4582 kg

DRUGS (4)
  1. LAMICTAL [Suspect]
     Indication: BIPOLAR DISORDER
     Dosage: 200 MG/PER DAY/ORAL
     Route: 048
     Dates: start: 20040928, end: 20070228
  2. LITHIUM CARBONATE [Concomitant]
  3. CLONAZEPAM [Concomitant]
  4. RISPERDAL [Concomitant]

REACTIONS (4)
  - DEAFNESS [None]
  - EAR PAIN [None]
  - LIP ULCERATION [None]
  - RASH [None]
